FAERS Safety Report 4709466-0 (Version None)
Quarter: 2005Q3

REPORT INFORMATION
  Report Type: 
  Country: None (occurrence: None)
  Receive Date: 20050708
  Receipt Date: 20050629
  Transmission Date: 20060218
  Serious: Yes (Life-Threatening, Hospitalization)
  Sender: FDA-Public Use
  Company Number: PHBS2005NZ09350

PATIENT
  Age: 51 Year
  Sex: Female

DRUGS (1)
  1. TEGRETOL [Suspect]
     Indication: BIPOLAR DISORDER
     Dosage: UNK, UNK
     Route: 048
     Dates: start: 19960101, end: 19960101

REACTIONS (5)
  - CEREBROVASCULAR ACCIDENT [None]
  - LOSS OF CONSCIOUSNESS [None]
  - RASH GENERALISED [None]
  - RASH VESICULAR [None]
  - RENAL FAILURE [None]
